FAERS Safety Report 15013249 (Version 5)
Quarter: 2021Q4

REPORT INFORMATION
  Report Type: Report from Study
  Country: FR (occurrence: FR)
  Receive Date: 20180614
  Receipt Date: 20211126
  Transmission Date: 20220303
  Serious: Yes (Other)
  Sender: FDA-Public Use
  Company Number: PHHO2018FR003022

PATIENT
  Age: 54 Year
  Sex: Female
  Weight: 89 kg

DRUGS (6)
  1. TRAMETINIB [Suspect]
     Active Substance: TRAMETINIB
     Indication: Malignant melanoma
     Dosage: 2 MG, QOD
     Route: 048
     Dates: start: 20180213, end: 20180214
  2. TRAMETINIB [Suspect]
     Active Substance: TRAMETINIB
     Dosage: 4 MG, QD
     Route: 048
     Dates: start: 20180215, end: 20180227
  3. TRAMETINIB [Suspect]
     Active Substance: TRAMETINIB
     Dosage: 2 MG, QD
     Route: 048
     Dates: start: 20180228, end: 20180604
  4. TRAMETINIB [Suspect]
     Active Substance: TRAMETINIB
     Dosage: UNK, QD
     Route: 048
     Dates: start: 20180605, end: 20180612
  5. SPARTALIZUMAB [Suspect]
     Active Substance: SPARTALIZUMAB
     Indication: Malignant melanoma
     Dosage: 400 MG, Q4W
     Route: 042
     Dates: start: 20180213
  6. DABRAFENIB [Suspect]
     Active Substance: DABRAFENIB
     Indication: Malignant melanoma
     Dosage: 150 MG, BID
     Route: 048
     Dates: start: 20180213

REACTIONS (1)
  - Overdose [Recovered/Resolved]

NARRATIVE: CASE EVENT DATE: 20180215
